FAERS Safety Report 21249397 (Version 1)
Quarter: 2022Q3

REPORT INFORMATION
  Report Type: Spontaneous
  Country: US (occurrence: US)
  Receive Date: 20220824
  Receipt Date: 20220824
  Transmission Date: 20221027
  Serious: No
  Sender: FDA-Public Use
  Company Number: US-PFIZER INC-PV202200047525

PATIENT
  Age: 60 Year
  Sex: Female

DRUGS (1)
  1. XELJANZ [Suspect]
     Active Substance: TOFACITINIB CITRATE
     Indication: Rheumatoid arthritis
     Dosage: 5 MG, 2X/DAY
     Route: 048
     Dates: start: 202207

REACTIONS (7)
  - Therapeutic product effect incomplete [Unknown]
  - Finger deformity [Unknown]
  - Dehydration [Unknown]
  - Dry mouth [Unknown]
  - Dry throat [Unknown]
  - Thyroid hormones increased [Unknown]
  - Weight decreased [Unknown]
